FAERS Safety Report 24328829 (Version 1)
Quarter: 2024Q3

REPORT INFORMATION
  Report Type: Spontaneous
  Country: CA (occurrence: CA)
  Receive Date: 20240917
  Receipt Date: 20240917
  Transmission Date: 20241017
  Serious: Yes (Other)
  Sender: BAXTER
  Company Number: CA-BAXTER-2024BAX024247

PATIENT
  Age: 55 Year
  Sex: Male

DRUGS (8)
  1. ONDANSETRON [Suspect]
     Active Substance: ONDANSETRON
     Dosage: (DOSAGE FORM : NOT SPECIFIED)
     Route: 065
  2. ACETAMINOPHEN [Suspect]
     Active Substance: ACETAMINOPHEN
     Dosage: (DOSAGE FORM : NOT SPECIFIED)
     Route: 065
  3. AMOXICILLIN [Suspect]
     Active Substance: AMOXICILLIN
     Dosage: (DOSAGE FORM : NOT SPECIFIED)
     Route: 065
  4. CIPROFLOXACIN [Suspect]
     Active Substance: CIPROFLOXACIN
     Dosage: (DOSAGE FORM : NOT SPECIFIED)
     Route: 065
  5. FILGRASTIM [Suspect]
     Active Substance: FILGRASTIM
     Route: 065
  6. FLUCONAZOLE [Suspect]
     Active Substance: FLUCONAZOLE
     Dosage: (DOSAGE FORM : NOT SPECIFIED)
     Route: 065
  7. PANTOPRAZOLE [Suspect]
     Active Substance: PANTOPRAZOLE
     Dosage: (DOSAGE FORM : NOT SPECIFIED)
     Route: 065
  8. PROCHLORPERAZINE [Suspect]
     Active Substance: PROCHLORPERAZINE
     Dosage: (DOSAGE FORM : NOT SPECIFIED)
     Route: 065

REACTIONS (1)
  - Febrile neutropenia [Unknown]
